FAERS Safety Report 6991863-4 (Version None)
Quarter: 2010Q3

REPORT INFORMATION
  Report Type: 
  Country: None (occurrence: None)
  Receive Date: 20100917
  Receipt Date: 20100906
  Transmission Date: 20110219
  Serious: Yes (Other)
  Sender: FDA-Public Use
  Company Number: JP-PFIZER INC-2010097828

PATIENT
  Age: 78 Year
  Sex: Female
  Weight: 54 kg

DRUGS (7)
  1. LYRICA [Suspect]
     Indication: POST HERPETIC NEURALGIA
     Dosage: 75 MG, 2X/DAY
     Route: 048
     Dates: start: 20100717, end: 20100720
  2. VALSARTAN [Concomitant]
     Indication: HYPERTENSION
     Dosage: 40 MG, 1X/DAY
     Route: 048
     Dates: start: 20100115
  3. RIZE [Concomitant]
     Dosage: 10 MG, 1X/DAY
     Route: 048
     Dates: start: 20000817
  4. METHYCOBAL [Concomitant]
     Indication: HERPES ZOSTER
     Dosage: 500 MG, 3X/DAY
     Route: 048
     Dates: start: 20090818
  5. PLATIBIT [Concomitant]
     Indication: OSTEOPOROSIS
     Dosage: 1 UG, 1X/DAY
     Route: 048
     Dates: start: 20100407
  6. JUVELA NICOTINATE [Concomitant]
     Indication: HERPES ZOSTER
     Dosage: 200 MG, 3X/DAY
     Route: 048
     Dates: start: 20090831
  7. IMIDOLOL [Concomitant]
     Indication: POST HERPETIC NEURALGIA
     Dosage: 10 MG, 3X/DAY
     Route: 048
     Dates: start: 20090914, end: 20100717

REACTIONS (4)
  - DIZZINESS [None]
  - HEADACHE [None]
  - MICTURITION DISORDER [None]
  - SOMNOLENCE [None]
